FAERS Safety Report 6709512-9 (Version None)
Quarter: 2010Q2

REPORT INFORMATION
  Report Type: 
  Country: None (occurrence: None)
  Receive Date: 20100504
  Receipt Date: 20100423
  Transmission Date: 20101027
  Serious: Yes (Other)
  Sender: FDA-Public Use
  Company Number: JP-PFIZER INC-2010036969

PATIENT
  Age: 69 Year
  Sex: Male
  Weight: 41.5 kg

DRUGS (2)
  1. CHAMPIX [Suspect]
     Indication: NICOTINE DEPENDENCE
     Dosage: 2 MG, 2X/DAY
     Route: 048
     Dates: start: 20091225, end: 20100123
  2. TRIAZOLAM [Concomitant]
     Indication: INSOMNIA
     Dosage: UNK
     Route: 048
     Dates: start: 20100108

REACTIONS (4)
  - ALTERED STATE OF CONSCIOUSNESS [None]
  - CONTUSION [None]
  - HEAD INJURY [None]
  - MALAISE [None]
